FAERS Safety Report 19305133 (Version 1)
Quarter: 2021Q2

REPORT INFORMATION
  Report Type: Spontaneous
  Country: US (occurrence: US)
  Receive Date: 20210525
  Receipt Date: 20210525
  Transmission Date: 20210717
  Serious: Yes (Other)
  Sender: FDA-Public Use
  Company Number: US-SA-2021SA168031

PATIENT
  Age: 49 Year
  Sex: Female

DRUGS (1)
  1. ZANTAC [Suspect]
     Active Substance: RANITIDINE HYDROCHLORIDE
     Indication: DYSPEPSIA
     Dosage: 300 MG, QD
     Dates: start: 201309, end: 201911

REACTIONS (3)
  - Hepatic cancer stage I [Unknown]
  - Lung carcinoma cell type unspecified stage I [Unknown]
  - Colorectal cancer stage I [Unknown]

NARRATIVE: CASE EVENT DATE: 20160927
